FAERS Safety Report 12009673 (Version 2)
Quarter: 2016Q2

REPORT INFORMATION
  Report Type: Spontaneous
  Country: US (occurrence: US)
  Receive Date: 20160205
  Receipt Date: 20160525
  Transmission Date: 20160815
  Serious: Yes (Death, Hospitalization, Other)
  Sender: FDA-Public Use
  Company Number: US-PFIZER INC-2016066562

PATIENT
  Age: 69 Year
  Sex: Male

DRUGS (3)
  1. TESTOSTERONE. [Suspect]
     Active Substance: TESTOSTERONE
     Indication: HORMONE REPLACEMENT THERAPY
     Dosage: UNK, SHOT EVERY OTHER MONTH
     Dates: start: 20100419, end: 20131119
  2. TESTOSTERONE. [Suspect]
     Active Substance: TESTOSTERONE
     Dosage: UNK, SHOTS EVERY FEW WEEKS
     Dates: end: 201312
  3. DEPO-TESTOSTERONE [Suspect]
     Active Substance: TESTOSTERONE CYPIONATE
     Indication: HORMONE REPLACEMENT THERAPY
     Dosage: UNK
     Dates: start: 2010, end: 20131210

REACTIONS (5)
  - Pulmonary embolism [Unknown]
  - Asthenia [Unknown]
  - Myocardial infarction [Fatal]
  - Fatigue [Unknown]
  - Weight decreased [Unknown]

NARRATIVE: CASE EVENT DATE: 2013
